FAERS Safety Report 4905781-6 (Version None)
Quarter: 2006Q1

REPORT INFORMATION
  Report Type: 
  Country: None (occurrence: None)
  Receive Date: 20060208
  Receipt Date: 20050930
  Transmission Date: 20060701
  Serious: Yes (Hospitalization, Disabling, Other)
  Sender: FDA-Public Use
  Company Number: US-MERCK-0510USA02083

PATIENT
  Age: 22 Year
  Sex: Male
  Weight: 136 kg

DRUGS (1)
  1. VIOXX [Suspect]
     Indication: PAIN
     Route: 048
     Dates: start: 19990101, end: 20010101

REACTIONS (10)
  - ASPHYXIA [None]
  - CARDIAC FAILURE CONGESTIVE [None]
  - CARDIOMEGALY [None]
  - CHRONIC OBSTRUCTIVE PULMONARY DISEASE [None]
  - FIBROSIS [None]
  - HYPERTHYROIDISM [None]
  - HYPOXIA [None]
  - OVERDOSE [None]
  - PNEUMONIA [None]
  - SLEEP APNOEA SYNDROME [None]
